FAERS Safety Report 19964620 (Version 1)
Quarter: 2021Q4

REPORT INFORMATION
  Report Type: Spontaneous
  Country: US (occurrence: US)
  Receive Date: 20211018
  Receipt Date: 20211018
  Transmission Date: 20220304
  Serious: Yes (Other)
  Sender: FDA-Public Use
  Company Number: US-GLAXOSMITHKLINE-USCH2021071206

PATIENT
  Age: 59 Year
  Sex: Female

DRUGS (1)
  1. TUMS CHEWY DELIGHTS [Suspect]
     Active Substance: CALCIUM CARBONATE
     Indication: Dyspepsia
     Dates: start: 20211010

REACTIONS (2)
  - Anaphylactic reaction [Unknown]
  - Urticaria [Recovering/Resolving]

NARRATIVE: CASE EVENT DATE: 20211010
